FAERS Safety Report 6265329-3 (Version None)
Quarter: 2009Q3

REPORT INFORMATION
  Report Type: 
  Country: None (occurrence: None)
  Receive Date: 20090709
  Receipt Date: 20090709
  Transmission Date: 20100115
  Serious: Yes (Hospitalization)
  Sender: FDA-Public Use
  Company Number: None

PATIENT
  Sex: Female
  Weight: 97.1 kg

DRUGS (2)
  1. CARBOPLATIN [Suspect]
     Dosage: 275 MG
  2. TAXOL [Suspect]
     Dosage: 90 MG

REACTIONS (6)
  - BLOOD COUNT ABNORMAL [None]
  - CHEST PAIN [None]
  - DYSPHAGIA [None]
  - DYSPNOEA [None]
  - NEUTROPENIA [None]
  - OESOPHAGITIS [None]
